FAERS Safety Report 19878654 (Version 1)
Quarter: 2021Q3

REPORT INFORMATION
  Report Type: Spontaneous
  Country: JP (occurrence: JP)
  Receive Date: 20210924
  Receipt Date: 20210924
  Transmission Date: 20211014
  Serious: Yes (Other)
  Sender: FDA-Public Use
  Company Number: NVSJ2021JP010433

PATIENT
  Age: 74 Year
  Sex: Female
  Weight: 66.8 kg

DRUGS (11)
  1. CEFAZOLIN [Suspect]
     Active Substance: CEFAZOLIN
     Indication: TONSILLITIS
     Dosage: 2 G
     Route: 042
     Dates: start: 20210609, end: 20210622
  2. ROSUVASTATIN. [Concomitant]
     Active Substance: ROSUVASTATIN
     Indication: DYSLIPIDAEMIA
     Dosage: 2.5 MG, QD
     Route: 048
     Dates: start: 20210521
  3. EQUMET [Suspect]
     Active Substance: METFORMIN HYDROCHLORIDE\VILDAGLIPTIN
     Dosage: METFORMIN HYDROCHLORIDE 250MG/ VILDAGLIPTIN 50MG
     Route: 048
     Dates: start: 20210903
  4. EICOSAPENTAENOIC ACID ETHYL ESTER [Concomitant]
     Active Substance: ICOSAPENT ETHYL
     Indication: DYSLIPIDAEMIA
     Dosage: 900 MG, BID
     Route: 048
     Dates: start: 20210521, end: 20210602
  5. EQUMET [Suspect]
     Active Substance: METFORMIN HYDROCHLORIDE\VILDAGLIPTIN
     Dosage: 1 DF: METFORMIN HYDROCHLORIDE 500MG/ VILDAGLIPTIN 50MG, BID
     Route: 048
     Dates: start: 20210802, end: 20210902
  6. CLOPIDOGREL [Concomitant]
     Active Substance: CLOPIDOGREL BISULFATE
     Indication: CEREBRAL INFARCTION
     Dosage: 75 MG, QD
     Route: 048
     Dates: start: 20210521
  7. TELMISARTAN AND AMLODIPINE [Concomitant]
     Active Substance: AMLODIPINE BESYLATE\TELMISARTAN
     Indication: HYPERTENSION
     Dosage: UNK UNK, QD
     Route: 048
     Dates: start: 20210521
  8. CEFAZOLIN [Suspect]
     Active Substance: CEFAZOLIN
     Indication: CELLULITIS
     Dosage: UNK
     Route: 065
     Dates: start: 20210901
  9. EQUMET [Suspect]
     Active Substance: METFORMIN HYDROCHLORIDE\VILDAGLIPTIN
     Indication: TYPE 2 DIABETES MELLITUS
     Dosage: 1 DF: METFORMIN HYDROCHLORIDE 500MG/ VILDAGLIPTIN 50MG, BID
     Route: 048
     Dates: start: 20210526, end: 20210606
  10. EQUMET [Suspect]
     Active Substance: METFORMIN HYDROCHLORIDE\VILDAGLIPTIN
     Dosage: 1 DF: METFORMIN HYDROCHLORIDE 250MG/ VILDAGLIPTIN 50MG, BID
     Route: 048
     Dates: start: 20210616, end: 20210801
  11. METFORMIN HYDROCHLORIDE. [Concomitant]
     Active Substance: METFORMIN HYDROCHLORIDE
     Indication: TYPE 2 DIABETES MELLITUS
     Dosage: 500 MG
     Route: 048

REACTIONS (6)
  - Cellulitis [Unknown]
  - Vomiting [Unknown]
  - Pyrexia [Unknown]
  - Diarrhoea [Recovering/Resolving]
  - Constipation [Unknown]
  - Diabetes mellitus inadequate control [Unknown]

NARRATIVE: CASE EVENT DATE: 20210601
